FAERS Safety Report 9493965 (Version 1)
Quarter: 2013Q3

REPORT INFORMATION
  Report Type: Spontaneous
  Country: FI (occurrence: FI)
  Receive Date: 20130903
  Receipt Date: 20130903
  Transmission Date: 20140515
  Serious: Yes (Hospitalization)
  Sender: FDA-Public Use
  Company Number: FI-ROCHE-1269525

PATIENT
  Age: 29 Year
  Sex: Male

DRUGS (1)
  1. MABTHERA [Suspect]
     Indication: GRANULOMATOSIS WITH POLYANGIITIS
     Route: 042
     Dates: start: 201307

REACTIONS (4)
  - Meningitis [Recovered/Resolved]
  - Headache [Recovered/Resolved]
  - C-reactive protein increased [Recovered/Resolved]
  - Borrelia infection [Unknown]
